FAERS Safety Report 7602078-0 (Version None)
Quarter: 2011Q3

REPORT INFORMATION
  Report Type: 
  Country: None (occurrence: None)
  Receive Date: 20110711
  Receipt Date: 20110706
  Transmission Date: 20111222
  Serious: Yes (Other)
  Sender: FDA-Public Use
  Company Number: US-PFIZER INC-2011112862

PATIENT
  Age: 51 Year
  Sex: Female

DRUGS (1)
  1. NARDIL [Suspect]
     Indication: PANIC DISORDER
     Dosage: 30 MG, 2X/DAY
     Route: 048
     Dates: start: 19810101

REACTIONS (3)
  - MENISCUS LESION [None]
  - INSOMNIA [None]
  - BREAST LUMP REMOVAL [None]
